FAERS Safety Report 6104228-4 (Version None)
Quarter: 2009Q1

REPORT INFORMATION
  Report Type: 
  Country: None (occurrence: None)
  Receive Date: 20090305
  Receipt Date: 20090302
  Transmission Date: 20090719
  Serious: Yes (Death)
  Sender: FDA-Public Use
  Company Number: US-TEVA-184594USA

PATIENT
  Age: 32 Year
  Sex: Female

DRUGS (3)
  1. COPAXONE [Suspect]
     Indication: MULTIPLE SCLEROSIS
     Route: 058
     Dates: start: 20080811
  2. COPAXONE [Concomitant]
  3. INTERFERON BETA-1A [Suspect]
     Dates: end: 20080808

REACTIONS (1)
  - COMPLETED SUICIDE [None]
